FAERS Safety Report 15890890 (Version 1)
Quarter: 2019Q1

REPORT INFORMATION
  Report Type: Spontaneous
  Country: JP (occurrence: JP)
  Receive Date: 20190130
  Receipt Date: 20190130
  Transmission Date: 20190417
  Serious: Yes (Other)
  Sender: FDA-Public Use
  Company Number: JP-MYLANLABS-2019M1007737

PATIENT
  Age: 4 Decade
  Sex: Female

DRUGS (2)
  1. ROPIVACAINE. [Suspect]
     Active Substance: ROPIVACAINE HYDROCHLORIDE
     Indication: EPIDURAL ANAESTHESIA
     Route: 008
  2. FENTANYL. [Suspect]
     Active Substance: FENTANYL
     Indication: EPIDURAL ANAESTHESIA
     Route: 008

REACTIONS (2)
  - Cauda equina syndrome [Unknown]
  - Maternal exposure during delivery [Recovered/Resolved]
